FAERS Safety Report 24707142 (Version 1)
Quarter: 2024Q4

REPORT INFORMATION
  Report Type: Spontaneous
  Country: DK (occurrence: DK)
  Receive Date: 20241206
  Receipt Date: 20241206
  Transmission Date: 20250114
  Serious: Yes (Other)
  Sender: PFIZER
  Company Number: None

PATIENT
  Age: 63 Year
  Sex: Female
  Weight: 65 kg

DRUGS (4)
  1. PEMETREXED [Suspect]
     Active Substance: PEMETREXED
     Indication: Lung neoplasm malignant
     Dosage: UNK
     Dates: start: 20240909
  2. CARBOPLATIN [Suspect]
     Active Substance: CARBOPLATIN
     Indication: Lung neoplasm malignant
     Dosage: UNK
     Dates: start: 20240909
  3. LIBTAYO [Suspect]
     Active Substance: CEMIPLIMAB-RWLC
     Indication: Lung neoplasm malignant
     Dosage: UNK
     Dates: start: 20240909
  4. METHIMAZOLE [Concomitant]
     Active Substance: METHIMAZOLE
     Indication: Hyperthyroidism
     Dosage: 5 MG, 1X/DAY
     Dates: start: 20240930

REACTIONS (4)
  - Hyperthyroidism [Recovering/Resolving]
  - C-reactive protein increased [Unknown]
  - Off label use [Unknown]
  - Product use issue [Unknown]

NARRATIVE: CASE EVENT DATE: 20240909
